FAERS Safety Report 6114401-7 (Version None)
Quarter: 2009Q1

REPORT INFORMATION
  Report Type: 
  Country: None (occurrence: None)
  Receive Date: 20090313
  Receipt Date: 20090304
  Transmission Date: 20090719
  Serious: Yes (Hospitalization)
  Sender: FDA-Public Use
  Company Number: US-JNJFOC-20090105596

PATIENT
  Sex: Female
  Weight: 71.67 kg

DRUGS (3)
  1. INVEGA [Suspect]
     Indication: BIPOLAR DISORDER
     Route: 048
  2. ANTIHYPERTENSIVE, NOS [Concomitant]
     Indication: HYPERTENSION
  3. EFFEXOR XR [Concomitant]
     Indication: DEPRESSION

REACTIONS (2)
  - MANIA [None]
  - SUICIDAL IDEATION [None]
